FAERS Safety Report 21787924 (Version 1)
Quarter: 2022Q4

REPORT INFORMATION
  Report Type: Spontaneous
  Country: US (occurrence: US)
  Receive Date: 20221228
  Receipt Date: 20221228
  Transmission Date: 20230113
  Serious: No
  Sender: FDA-Public Use
  Company Number: US-SA-SAC20221227000352

PATIENT
  Age: 73 Year
  Sex: Female
  Weight: 79.3 kg

DRUGS (11)
  1. DUPIXENT [Suspect]
     Active Substance: DUPILUMAB
     Indication: Nasal polyps
     Dosage: 300 MG, QOW
     Route: 058
     Dates: start: 20221110
  2. RESTASIS [Concomitant]
     Active Substance: CYCLOSPORINE
  3. TRELEGY ELLIPTA [Concomitant]
     Active Substance: FLUTICASONE FUROATE\UMECLIDINIUM BROMIDE\VILANTEROL TRIFENATATE
  4. XHANCE [Concomitant]
     Active Substance: FLUTICASONE PROPIONATE
  5. MELOXICAM [Concomitant]
     Active Substance: MELOXICAM
  6. NITROFURANTOIN [Concomitant]
     Active Substance: NITROFURANTOIN
  7. VITAMIN D NOS [Concomitant]
     Active Substance: VITAMIN D NOS
  8. AMLODIPINE BESYLATE [Concomitant]
     Active Substance: AMLODIPINE BESYLATE
  9. ACTEMRA [Concomitant]
     Active Substance: TOCILIZUMAB
     Dosage: 200MG/10ML VIAL
  10. BIFIDOBACTERIUM ANIMALIS LACTIS [Concomitant]
     Active Substance: BIFIDOBACTERIUM ANIMALIS LACTIS
  11. VITAMINS NOS [Concomitant]
     Active Substance: VITAMINS

REACTIONS (3)
  - Sensitivity to weather change [Not Recovered/Not Resolved]
  - Epistaxis [Not Recovered/Not Resolved]
  - Condition aggravated [Not Recovered/Not Resolved]
